FAERS Safety Report 9204783 (Version 6)
Quarter: 2014Q1

REPORT INFORMATION
  Report Type: Spontaneous
  Country: US (occurrence: US)
  Receive Date: 20130402
  Receipt Date: 20140225
  Transmission Date: 20141002
  Serious: Yes (Hospitalization, Other)
  Sender: FDA-Public Use
  Company Number: US-GLAXOSMITHKLINE-A1018313A

PATIENT
  Age: 39 Year
  Sex: Female
  Weight: 85.9 kg

DRUGS (5)
  1. FLOLAN [Suspect]
     Indication: PULMONARY ARTERIAL HYPERTENSION
     Dosage: 17NGK CONTINUOUS
     Route: 042
     Dates: start: 20000406
  2. REVATIO [Concomitant]
  3. TRACLEER [Concomitant]
  4. SINGULAIR [Concomitant]
  5. COUMADIN [Concomitant]

REACTIONS (4)
  - Asthma [Recovering/Resolving]
  - Treatment noncompliance [Recovered/Resolved]
  - Pain in extremity [Recovered/Resolved]
  - Malaise [Recovering/Resolving]
